FAERS Safety Report 7715381-0 (Version None)
Quarter: 2011Q3

REPORT INFORMATION
  Report Type: 
  Country: None (occurrence: None)
  Receive Date: 20110829
  Receipt Date: 20110815
  Transmission Date: 20111222
  Serious: Yes (Hospitalization, Other)
  Sender: FDA-Public Use
  Company Number: US-ELI_LILLY_AND_COMPANY-US201108005367

PATIENT
  Sex: Female

DRUGS (7)
  1. POTASSIUM [Concomitant]
  2. LASIX [Concomitant]
  3. AMOXAPINE [Concomitant]
     Indication: DEPRESSION
  4. FORTEO [Suspect]
     Indication: OSTEOPOROSIS
     Dosage: 20 UG, QD
     Dates: end: 20110501
  5. PRAVACHOL [Concomitant]
  6. COREG [Concomitant]
  7. LISINOPRIL [Concomitant]

REACTIONS (2)
  - IMPLANTABLE DEFIBRILLATOR INSERTION [None]
  - DRUG DOSE OMISSION [None]
